FAERS Safety Report 13586079 (Version 1)
Quarter: 2017Q2

REPORT INFORMATION
  Report Type: Spontaneous
  Country: US (occurrence: US)
  Receive Date: 20170526
  Receipt Date: 20170526
  Transmission Date: 20170830
  Serious: Yes (Other)
  Sender: FDA-Public Use
  Company Number: None

PATIENT
  Age: 9 Year
  Sex: Male
  Weight: 40.86 kg

DRUGS (1)
  1. VYVANSE [Suspect]
     Active Substance: LISDEXAMFETAMINE DIMESYLATE
     Indication: DYSLEXIA
     Route: 048
     Dates: start: 201412, end: 201504

REACTIONS (2)
  - Intentional self-injury [None]
  - Suicidal ideation [None]

NARRATIVE: CASE EVENT DATE: 2015
